FAERS Safety Report 5087380-1 (Version None)
Quarter: 2006Q3

REPORT INFORMATION
  Report Type: 
  Country: None (occurrence: None)
  Receive Date: 20060824
  Receipt Date: 20060817
  Transmission Date: 20061208
  Serious: Yes (Hospitalization)
  Sender: FDA-Public Use
  Company Number: US-JNJFOC-20060605822

PATIENT
  Sex: Male
  Weight: 113.4 kg

DRUGS (3)
  1. REMICADE [Suspect]
     Route: 042
  2. REMICADE [Suspect]
     Route: 042
  3. REMICADE [Suspect]
     Indication: RHEUMATOID ARTHRITIS
     Route: 042

REACTIONS (4)
  - BLOOD GLUCOSE DECREASED [None]
  - BLOOD PRESSURE DECREASED [None]
  - HYPOTENSION [None]
  - MOBILITY DECREASED [None]
